FAERS Safety Report 5689585-5 (Version None)
Quarter: 2008Q1

REPORT INFORMATION
  Report Type: 
  Country: None (occurrence: None)
  Receive Date: 20080331
  Receipt Date: 20071214
  Transmission Date: 20080703
  Serious: Yes (Hospitalization)
  Sender: FDA-Public Use
  Company Number: CA-GILEAD-2007-0014646

PATIENT
  Sex: Male

DRUGS (14)
  1. VIREAD [Suspect]
  2. KALETRA [Concomitant]
  3. VIDEX [Concomitant]
  4. CITALOPRAM HYDROBROMIDE [Concomitant]
  5. POTASSIUM CHLORIDE [Concomitant]
  6. METOCLOPRAMIDE [Concomitant]
  7. SEROQUEL [Concomitant]
  8. BACTRIM [Concomitant]
  9. CESAMET [Concomitant]
  10. CLONAZEPAM [Concomitant]
  11. PANTOPRAZOLE SODIUM [Concomitant]
  12. FENTANYL [Concomitant]
  13. SENOKOT [Concomitant]
  14. LACTULOSE [Concomitant]

REACTIONS (3)
  - DIABETES INSIPIDUS [None]
  - ELECTROLYTE IMBALANCE [None]
  - RENAL TUBULAR ACIDOSIS [None]
